FAERS Safety Report 16881542 (Version 1)
Quarter: 2019Q4

REPORT INFORMATION
  Report Type: Spontaneous
  Country: US (occurrence: US)
  Receive Date: 20191003
  Receipt Date: 20191003
  Transmission Date: 20200122
  Serious: Yes (Hospitalization)
  Sender: FDA-Public Use
  Company Number: US-ASTRAZENECA-2019SF37217

PATIENT
  Age: 66 Year
  Sex: Female

DRUGS (1)
  1. SYMBICORT [Suspect]
     Active Substance: BUDESONIDE\FORMOTEROL FUMARATE DIHYDRATE
     Dosage: 160/4.5 MCG TWO TIMES A DAY
     Route: 055
     Dates: start: 2006

REACTIONS (11)
  - Tooth disorder [Unknown]
  - Decreased appetite [Unknown]
  - Dyspnoea exertional [Unknown]
  - Depression [Unknown]
  - Jaw disorder [Unknown]
  - Cataract [Unknown]
  - Fall [Unknown]
  - Gingival disorder [Unknown]
  - Visual impairment [Unknown]
  - Hip fracture [Recovered/Resolved with Sequelae]
  - Syncope [Unknown]

NARRATIVE: CASE EVENT DATE: 2016
